FAERS Safety Report 12837209 (Version 1)
Quarter: 2016Q4

REPORT INFORMATION
  Report Type: Spontaneous
  Country: IN (occurrence: US)
  Receive Date: 20161008
  Receipt Date: 20161008
  Transmission Date: 20170207
  Serious: Yes (Disabling)
  Sender: FDA-Public Use
  Company Number: None

PATIENT
  Age: 57 Year
  Sex: Female
  Weight: 65 kg

DRUGS (6)
  1. CLINDATEC-300 [Concomitant]
     Active Substance: CLINDAMYCIN PHOSPHATE
  2. MEGAZOLID PLUS [Concomitant]
  3. CLINDATEC 600 [Suspect]
     Active Substance: CLINDAMYCIN PHOSPHATE
     Indication: LUNG INFECTION
     Dosage: ?          QUANTITY:20 CAPSULE(S);?
     Route: 048
     Dates: start: 20160927, end: 20160927
  4. CLINDATEC 600 [Suspect]
     Active Substance: CLINDAMYCIN PHOSPHATE
     Indication: ASTHMA
     Dosage: ?          QUANTITY:20 CAPSULE(S);?
     Route: 048
     Dates: start: 20160927, end: 20160927
  5. DUOLIN ROTACAP + FORACART ROTACAP [Concomitant]
  6. CLINDATEC 600 [Suspect]
     Active Substance: CLINDAMYCIN PHOSPHATE
     Indication: COUGH
     Dosage: ?          QUANTITY:20 CAPSULE(S);?
     Route: 048
     Dates: start: 20160927, end: 20160927

REACTIONS (2)
  - Eye swelling [None]
  - Peripheral swelling [None]

NARRATIVE: CASE EVENT DATE: 20160928
